FAERS Safety Report 7057352-6 (Version None)
Quarter: 2010Q4

REPORT INFORMATION
  Report Type: 
  Country: None (occurrence: None)
  Receive Date: 20101022
  Receipt Date: 20101008
  Transmission Date: 20110411
  Serious: Yes (Death)
  Sender: FDA-Public Use
  Company Number: BR-ACTELION-A-CH2010-40718

PATIENT
  Sex: Female

DRUGS (1)
  1. BOSENTAN TABLET 125 MG ROW [Suspect]
     Indication: PULMONARY ARTERIAL HYPERTENSION
     Dosage: 125 MG, OD
     Route: 048

REACTIONS (3)
  - COUGH [None]
  - DEATH [None]
  - MALAISE [None]
